FAERS Safety Report 6934797-3 (Version None)
Quarter: 2010Q3

REPORT INFORMATION
  Report Type: 
  Country: None (occurrence: None)
  Receive Date: 20100820
  Receipt Date: 20100805
  Transmission Date: 20110219
  Serious: Yes (Other)
  Sender: FDA-Public Use
  Company Number: PHHY2010JP51894

PATIENT
  Sex: Male

DRUGS (3)
  1. DIOVAN [Suspect]
     Indication: HYPERTENSION
     Dosage: 40 MG
     Route: 048
  2. CEROCRAL [Concomitant]
     Dosage: UNK
  3. PLAVIX [Concomitant]
     Dosage: UNK

REACTIONS (2)
  - ERYTHEMA [None]
  - LARGE INTESTINE OPERATION [None]
